FAERS Safety Report 15621191 (Version 2)
Quarter: 2018Q4

REPORT INFORMATION
  Report Type: Spontaneous
  Country: RO (occurrence: RO)
  Receive Date: 20181115
  Receipt Date: 20181116
  Transmission Date: 20190205
  Serious: Yes (Other)
  Sender: FDA-Public Use
  Company Number: PHHY2018RO153640

PATIENT
  Age: 45 Year
  Sex: Female

DRUGS (1)
  1. IMATINIB. [Suspect]
     Active Substance: IMATINIB MESYLATE
     Indication: METASTASES TO LIVER
     Dosage: 800 MG, QD
     Route: 065

REACTIONS (6)
  - Skin necrosis [Unknown]
  - Decreased appetite [Unknown]
  - Drug resistance [Unknown]
  - Anxiety [Unknown]
  - Ecchymosis [Unknown]
  - Generalised oedema [Unknown]
